FAERS Safety Report 8085193-X (Version None)
Quarter: 2012Q1

REPORT INFORMATION
  Report Type: 
  Country: None (occurrence: None)
  Receive Date: 20120128
  Receipt Date: 20110310
  Transmission Date: 20120608
  Serious: No
  Sender: FDA-Public Use
  Company Number: US-ABBOTT-11P-163-0711641-00

PATIENT
  Sex: Male
  Weight: 86.26 kg

DRUGS (7)
  1. HUMIRA [Suspect]
     Route: 058
     Dates: end: 20110201
  2. VITAMIN B-12 [Concomitant]
     Indication: VITAMIN SUPPLEMENTATION
  3. HUMIRA [Suspect]
     Route: 058
     Dates: start: 20110310
  4. MULTI-VITAMIN [Concomitant]
     Indication: VITAMIN SUPPLEMENTATION
  5. IMODIUM A-D [Concomitant]
     Indication: DIARRHOEA
     Dosage: 2 TABS IN AM AND 2 IN PM-1 EVERY 12HOURS
     Route: 048
  6. VITAMIN E [Concomitant]
     Indication: VITAMIN SUPPLEMENTATION
  7. HUMIRA [Suspect]
     Indication: CROHN'S DISEASE
     Dosage: ONCE, 1ST LOADING DOSE, Q2WK
     Route: 058

REACTIONS (11)
  - VOMITING [None]
  - FATIGUE [None]
  - ASTHENIA [None]
  - NAUSEA [None]
  - GASTROENTERITIS VIRAL [None]
  - RHINORRHOEA [None]
  - DIARRHOEA [None]
  - NASOPHARYNGITIS [None]
  - NASAL CONGESTION [None]
  - COUGH [None]
  - PAIN [None]
